FAERS Safety Report 11929683 (Version 6)
Quarter: 2016Q4

REPORT INFORMATION
  Report Type: Report from Study
  Country: AU (occurrence: AU)
  Receive Date: 20160120
  Receipt Date: 20161027
  Transmission Date: 20170206
  Serious: Yes (Other)
  Sender: FDA-Public Use
  Company Number: AU-ROCHE-1697175

PATIENT
  Age: 58 Year
  Sex: Female
  Weight: 94 kg

DRUGS (9)
  1. ACTEMRA [Suspect]
     Active Substance: TOCILIZUMAB
     Indication: RHEUMATOID ARTHRITIS
     Route: 042
     Dates: start: 20100409
  2. METHOTREXATE. [Suspect]
     Active Substance: METHOTREXATE
     Indication: RHEUMATOID ARTHRITIS
     Route: 048
  3. ROSUVASTATIN. [Concomitant]
     Active Substance: ROSUVASTATIN
     Route: 065
  4. ACTEMRA [Suspect]
     Active Substance: TOCILIZUMAB
     Route: 042
     Dates: start: 20150514
  5. FOLIC ACID. [Concomitant]
     Active Substance: FOLIC ACID
  6. ACTEMRA [Suspect]
     Active Substance: TOCILIZUMAB
     Route: 042
     Dates: start: 20151020
  7. ACTEMRA [Suspect]
     Active Substance: TOCILIZUMAB
     Route: 042
     Dates: start: 20151126
  8. ACTEMRA [Suspect]
     Active Substance: TOCILIZUMAB
     Route: 042
     Dates: start: 20151222
  9. ACTEMRA [Suspect]
     Active Substance: TOCILIZUMAB
     Route: 042
     Dates: start: 20150917

REACTIONS (10)
  - Abdominal pain [Unknown]
  - Infectious colitis [Unknown]
  - Gastrointestinal disorder [Unknown]
  - Haemorrhoids [Unknown]
  - Intestinal haemorrhage [Recovered/Resolved]
  - Infection [Unknown]
  - Gastrointestinal inflammation [Recovering/Resolving]
  - Diarrhoea haemorrhagic [Unknown]
  - Rectal haemorrhage [Unknown]
  - Polyp [Unknown]

NARRATIVE: CASE EVENT DATE: 20160117
